FAERS Safety Report 22764946 (Version 8)
Quarter: 2024Q2

REPORT INFORMATION
  Report Type: Spontaneous
  Country: US (occurrence: US)
  Receive Date: 20230731
  Receipt Date: 20240627
  Transmission Date: 20240715
  Serious: Yes (Disabling)
  Sender: FDA-Public Use
  Company Number: US-SA-SAC20230726001187

PATIENT
  Age: 15 Year
  Sex: Male

DRUGS (2)
  1. DUPIXENT [Suspect]
     Active Substance: DUPILUMAB
     Indication: Eczema
     Dosage: 600 MG, 1X
     Route: 058
     Dates: start: 20230717, end: 20230717
  2. DUPIXENT [Suspect]
     Active Substance: DUPILUMAB
     Indication: Dermatitis atopic
     Dosage: 300 MG, QOW
     Route: 058
     Dates: start: 2023

REACTIONS (15)
  - Loss of personal independence in daily activities [Recovered/Resolved]
  - Skin plaque [Recovered/Resolved]
  - White blood cell count increased [Not Recovered/Not Resolved]
  - Eczema [Recovered/Resolved]
  - Pruritus [Recovered/Resolved]
  - Skin haemorrhage [Recovered/Resolved]
  - Gait disturbance [Recovered/Resolved]
  - Skin exfoliation [Recovered/Resolved]
  - Skin fissures [Recovered/Resolved]
  - Initial insomnia [Not Recovered/Not Resolved]
  - Mood altered [Recovered/Resolved]
  - Eye inflammation [Unknown]
  - Ocular hyperaemia [Unknown]
  - Sleep disorder due to a general medical condition [Unknown]
  - Oral herpes [Unknown]

NARRATIVE: CASE EVENT DATE: 20230101
